FAERS Safety Report 17573192 (Version 1)
Quarter: 2020Q1

REPORT INFORMATION
  Report Type: Spontaneous
  Country: GB (occurrence: GB)
  Receive Date: 20200323
  Receipt Date: 20200323
  Transmission Date: 20200409
  Serious: Yes (Other)
  Sender: FDA-Public Use
  Company Number: GB-MYLANLABS-2020M1029348

PATIENT
  Age: 45 Year
  Sex: Female
  Weight: 61.23 kg

DRUGS (3)
  1. ACETYLSALICYLIC ACID [Concomitant]
     Active Substance: ASPIRIN
     Dosage: 75 MILLIGRAM, QD
  2. DOXYCYCLINE. [Suspect]
     Active Substance: DOXYCYCLINE
     Indication: SINUSITIS
     Dosage: 200MG ON FIRST DAY THEN WAS TO TAKE 100MG FOR NEXT 6 DAYS
     Route: 048
     Dates: start: 20200103, end: 20200103
  3. CERELLE [Concomitant]
     Active Substance: DESOGESTREL
     Dosage: UNK

REACTIONS (2)
  - Vomiting [Recovered/Resolved]
  - Malaise [Unknown]

NARRATIVE: CASE EVENT DATE: 20200103
